FAERS Safety Report 23783399 (Version 2)
Quarter: 2024Q2

REPORT INFORMATION
  Report Type: Spontaneous
  Country: IT (occurrence: IT)
  Receive Date: 20240425
  Receipt Date: 20240515
  Transmission Date: 20240715
  Serious: Yes (Hospitalization, Other)
  Sender: FDA-Public Use
  Company Number: IT-SA-SAC20240423000320

PATIENT
  Age: 75 Year
  Sex: Female

DRUGS (19)
  1. DUPIXENT [Suspect]
     Active Substance: DUPILUMAB
     Indication: Dermatitis atopic
     Dosage: 300 MG, QOW
     Route: 058
     Dates: start: 2023
  2. LEVOTHYROXINE [Concomitant]
     Active Substance: LEVOTHYROXINE\LEVOTHYROXINE SODIUM
     Indication: Hypertension
     Dosage: 1 DF, QD
  3. LEVOTHYROXINE [Concomitant]
     Active Substance: LEVOTHYROXINE\LEVOTHYROXINE SODIUM
     Indication: Type 2 diabetes mellitus
  4. METFORMIN [Concomitant]
     Active Substance: METFORMIN HYDROCHLORIDE
     Indication: Hypertension
     Dosage: 1 DF, BID
  5. METFORMIN [Concomitant]
     Active Substance: METFORMIN HYDROCHLORIDE
     Indication: Type 2 diabetes mellitus
  6. AMLODIPINE [Concomitant]
     Active Substance: AMLODIPINE BESYLATE
     Indication: Hypertension
     Dosage: 1 DF, QD
  7. AMLODIPINE [Concomitant]
     Active Substance: AMLODIPINE BESYLATE
     Indication: Type 2 diabetes mellitus
  8. RAMIPRIL [Concomitant]
     Active Substance: RAMIPRIL
     Indication: Hypertension
     Dosage: 1 DF, QD
  9. RAMIPRIL [Concomitant]
     Active Substance: RAMIPRIL
     Indication: Type 2 diabetes mellitus
  10. ASPIRIN [Concomitant]
     Active Substance: ASPIRIN
     Indication: Hypertension
     Dosage: 1 DF, QD
  11. ASPIRIN [Concomitant]
     Active Substance: ASPIRIN
     Indication: Type 2 diabetes mellitus
  12. PANTOPRAZOLE [Concomitant]
     Active Substance: PANTOPRAZOLE
     Indication: Hypertension
     Dosage: 1 DF, QD
  13. PANTOPRAZOLE [Concomitant]
     Active Substance: PANTOPRAZOLE
     Indication: Type 2 diabetes mellitus
  14. FOLIC ACID [Concomitant]
     Active Substance: FOLIC ACID
     Indication: Hypertension
     Dosage: 1 DF, QD
  15. FOLIC ACID [Concomitant]
     Active Substance: FOLIC ACID
     Indication: Type 2 diabetes mellitus
  16. ATORVASTATIN [Concomitant]
     Active Substance: ATORVASTATIN
     Indication: Type 2 diabetes mellitus
     Dosage: 1 DF, QD
  17. ATORVASTATIN [Concomitant]
     Active Substance: ATORVASTATIN
     Indication: Hypertension
  18. ENOXAPARIN [Concomitant]
     Active Substance: ENOXAPARIN
     Indication: Type 2 diabetes mellitus
     Dosage: 1 UNK, QD
  19. ENOXAPARIN [Concomitant]
     Active Substance: ENOXAPARIN
     Indication: Hypertension

REACTIONS (4)
  - Cerebrovascular accident [Unknown]
  - Aphasia [Recovered/Resolved with Sequelae]
  - Asthenia [Recovered/Resolved with Sequelae]
  - Thrombolysis [Recovered/Resolved with Sequelae]

NARRATIVE: CASE EVENT DATE: 20240328
